FAERS Safety Report 8847648 (Version 2)
Quarter: 2013Q1

REPORT INFORMATION
  Report Type: Spontaneous
  Country: NO (occurrence: NO)
  Receive Date: 20121018
  Receipt Date: 20130206
  Transmission Date: 20140127
  Serious: Yes (Congenital Anomaly)
  Sender: FDA-Public Use
  Company Number: NO-TEVA-364200ISR

PATIENT
  Sex: 0

DRUGS (3)
  1. TOPIRAMATE [Suspect]
     Indication: EPILEPSY
     Route: 064
  2. CLOBAZAM [Suspect]
     Indication: EPILEPSY
     Route: 064
  3. TEGRETOL [Suspect]
     Indication: EPILEPSY
     Dosage: 800 MG, DAILY
     Route: 064

REACTIONS (2)
  - Hypospadias [Unknown]
  - Foetal exposure during pregnancy [Unknown]
